FAERS Safety Report 9749914 (Version 1)
Quarter: 2013Q4

REPORT INFORMATION
  Report Type: Spontaneous
  Country: US (occurrence: US)
  Receive Date: 20131212
  Receipt Date: 20131212
  Transmission Date: 20140711
  Serious: Yes (Hospitalization)
  Sender: FDA-Public Use
  Company Number: US-BAYER-2013-151156

PATIENT
  Age: 45 Year
  Sex: Female
  Weight: 72.56 kg

DRUGS (12)
  1. YAZ [Suspect]
     Dosage: UNK
  2. BEYAZ [Suspect]
     Indication: MENORRHAGIA
     Dosage: UNK
  3. OXYCODONE [Concomitant]
     Indication: PAIN
     Dosage: 30 MG, UNK
     Dates: start: 20111020
  4. OXYCODONE [Concomitant]
     Indication: PAIN
     Dosage: 30 MG FOUR TIMES A DAY
     Route: 048
  5. OXYCONTIN [Concomitant]
     Indication: BACK PAIN
     Dosage: 30 MG, UNK
     Dates: start: 20111216
  6. OXYCONTIN [Concomitant]
     Indication: BACK PAIN
     Dosage: 10 MG, UNK
  7. TRIAMTERENE AND HYDROCHLOROTHIAZIDE [Concomitant]
     Dosage: 37.5/25
     Dates: start: 20111221
  8. TRIAMTERENE [Concomitant]
     Dosage: TRIAMTERENE 37.5 MG/HCTZ 25 MG 1 CAP DAILY
     Route: 048
  9. HYDROMORPHONE HCL [Concomitant]
     Dosage: UNK
     Dates: start: 20111230
  10. ONDANSETRON HYDROCHLORIDE [Concomitant]
     Dosage: UNK
     Dates: start: 20111230
  11. PERCOCET [Concomitant]
     Dosage: UNK
     Route: 048
  12. DILAUDID [Concomitant]
     Indication: CHEST PAIN
     Dosage: UNK

REACTIONS (1)
  - Pulmonary embolism [Recovered/Resolved]
